FAERS Safety Report 18006843 (Version 1)
Quarter: 2020Q3

REPORT INFORMATION
  Report Type: Spontaneous
  Country: US (occurrence: US)
  Receive Date: 20200709
  Receipt Date: 20200709
  Transmission Date: 20201103
  Serious: No
  Sender: FDA-Public Use
  Company Number: None

PATIENT

DRUGS (1)
  1. TRIKAFTA [Suspect]
     Active Substance: ELEXACAFTOR\IVACAFTOR\TEZACAFTOR
     Dosage: ?          OTHER DOSE:100/50/75 MG;?
     Route: 048

REACTIONS (4)
  - Incorrect dose administered [None]
  - Product tampering [None]
  - Product barcode issue [None]
  - Product packaging issue [None]
